FAERS Safety Report 8779445 (Version 1)
Quarter: 2012Q4

REPORT INFORMATION
  Report Type: 
  Country: AU (occurrence: AU)
  Receive Date: 20120912
  Receipt Date: 20120912
  Transmission Date: 20130627
  Serious: Yes (Hospitalization)
  Sender: FDA-Public Use
  Company Number: AU-CELGENEUS-008-20785-12090004

PATIENT
  Sex: Male

DRUGS (2)
  1. THALOMID [Suspect]
     Indication: MULTIPLE MYELOMA
     Dosage: 100 Milligram
     Route: 048
     Dates: start: 20120518
  2. THALOMID [Suspect]
     Dosage: 100 Milligram
     Route: 048
     Dates: start: 20120903

REACTIONS (1)
  - Adverse event [Unknown]
